FAERS Safety Report 10449551 (Version 1)
Quarter: 2014Q3

REPORT INFORMATION
  Report Type: Spontaneous
  Country: IT (occurrence: IT)
  Receive Date: 20140912
  Receipt Date: 20140912
  Transmission Date: 20150326
  Serious: Yes (Other)
  Sender: FDA-Public Use
  Company Number: IT-TEVA-508107ISR

PATIENT
  Age: 63 Year
  Sex: Male

DRUGS (5)
  1. ACICLOVIR [Suspect]
     Active Substance: ACYCLOVIR
     Indication: ANTIVIRAL PROPHYLAXIS
     Dosage: 1600 MILLIGRAM DAILY;
     Route: 048
     Dates: start: 20140718, end: 20140728
  2. THALIDOMIDE CELGENE - 50 MG CAPSULA RIGIDA - CELGENE EUROPE LIMITED [Suspect]
     Active Substance: THALIDOMIDE
     Indication: PLASMA CELL MYELOMA
     Dosage: 100 MILLIGRAM DAILY;
     Route: 048
     Dates: start: 20140718, end: 20140728
  3. DIFLUCAN [Suspect]
     Active Substance: FLUCONAZOLE
     Indication: ANTIFUNGAL PROPHYLAXIS
     Dosage: 200 MILLIGRAM DAILY;
     Route: 048
     Dates: start: 20140718, end: 20140728
  4. VELCADE - 1 FLACONCINO DA 3,5 MG [Concomitant]
     Indication: PLASMA CELL MYELOMA
     Dosage: 2.4 MG
     Route: 058
     Dates: start: 20140718, end: 20140728
  5. SOLDESAM - 0,2% GOCCE ORALI, SOLUZIONE [Concomitant]
     Indication: PLASMA CELL MYELOMA
     Dosage: 20 MG
     Route: 048
     Dates: start: 20140718, end: 20140728

REACTIONS (2)
  - Neurotoxicity [Unknown]
  - Transaminases increased [Recovered/Resolved]

NARRATIVE: CASE EVENT DATE: 20140728
